FAERS Safety Report 15204827 (Version 1)
Quarter: 2018Q3

REPORT INFORMATION
  Report Type: Spontaneous
  Country: US (occurrence: US)
  Receive Date: 20180726
  Receipt Date: 20180726
  Transmission Date: 20181010
  Serious: Yes (Hospitalization, Other)
  Sender: FDA-Public Use
  Company Number: US-SHIRE-US201828231

PATIENT
  Age: 57 Year
  Sex: Male

DRUGS (2)
  1. PROLASTAT [Concomitant]
     Indication: PRODUCT USED FOR UNKNOWN INDICATION
  2. ARALAST NP [Suspect]
     Active Substance: .ALPHA.1-PROTEINASE INHIBITOR HUMAN
     Indication: PRODUCT USED FOR UNKNOWN INDICATION
     Dosage: 5154 MG, UNK
     Route: 065

REACTIONS (3)
  - Hospitalisation [Unknown]
  - Product label confusion [Unknown]
  - Underdose [Unknown]
